FAERS Safety Report 8592157-6 (Version None)
Quarter: 2012Q3

REPORT INFORMATION
  Report Type: 
  Country: None (occurrence: None)
  Receive Date: 20120814
  Receipt Date: 20120806
  Transmission Date: 20120928
  Serious: Yes (Hospitalization, Other)
  Sender: FDA-Public Use
  Company Number: US-ELI_LILLY_AND_COMPANY-US201208001873

PATIENT
  Sex: Male

DRUGS (3)
  1. SIMVASTAN [Concomitant]
  2. WARFARIN SODIUM [Concomitant]
  3. CYMBALTA [Suspect]
     Indication: NEURALGIA
     Dosage: 30 MG, QD
     Dates: start: 20120615, end: 20120618

REACTIONS (6)
  - INCOHERENT [None]
  - CONFUSIONAL STATE [None]
  - BRADYCARDIA [None]
  - LOSS OF CONSCIOUSNESS [None]
  - FALL [None]
  - OFF LABEL USE [None]
